FAERS Safety Report 26160605 (Version 1)
Quarter: 2025Q4

REPORT INFORMATION
  Report Type: Report from Study
  Country: CA (occurrence: CA)
  Receive Date: 20251216
  Receipt Date: 20251216
  Transmission Date: 20260117
  Serious: Yes (Death)
  Sender: ASTELLAS
  Company Number: CA-PFIZER INC-202500243166

PATIENT
  Age: 44 Year
  Sex: Male

DRUGS (2)
  1. ENFORTUMAB VEDOTIN-EJFV [Suspect]
     Active Substance: ENFORTUMAB VEDOTIN-EJFV
     Indication: Transitional cell carcinoma metastatic
     Route: 065
  2. PEMBROLIZUMAB [Suspect]
     Active Substance: PEMBROLIZUMAB
     Indication: Transitional cell carcinoma metastatic
     Dosage: 400.0 MILLIGRAM, 1 EVERY 6 WEEKS
     Route: 042

REACTIONS (1)
  - Death [Fatal]
